FAERS Safety Report 17963109 (Version 1)
Quarter: 2020Q2

REPORT INFORMATION
  Report Type: Report from Study
  Country: None (occurrence: US)
  Receive Date: 20200630
  Receipt Date: 20200630
  Transmission Date: 20200714
  Serious: No
  Sender: FDA-Public Use
  Company Number: US-BIOVITRUM-2019US2892

PATIENT
  Age: 31 Year
  Sex: Female

DRUGS (1)
  1. KINERET [Suspect]
     Active Substance: ANAKINRA
     Indication: STILL^S DISEASE
     Route: 058
     Dates: start: 20190508

REACTIONS (7)
  - Oropharyngeal pain [Unknown]
  - Blood cholesterol increased [Unknown]
  - Product dose omission [Unknown]
  - Myalgia [Unknown]
  - Needle issue [Unknown]
  - Off label use [Not Recovered/Not Resolved]
  - Rash [Unknown]

NARRATIVE: CASE EVENT DATE: 20190508
